FAERS Safety Report 9470173 (Version 1)
Quarter: 2013Q3

REPORT INFORMATION
  Report Type: Spontaneous
  Country: None (occurrence: US)
  Receive Date: 20130822
  Receipt Date: 20130822
  Transmission Date: 20140515
  Serious: Yes (Other)
  Sender: FDA-Public Use
  Company Number: US-COVIDIEN/TYCO HEALTHCARE/MALLINCKRODT-T201303969

PATIENT
  Age: 31 Year
  Sex: Male

DRUGS (3)
  1. GABLOFEN [Suspect]
     Indication: MUSCLE SPASTICITY
     Dosage: 180 MCG/DAY
     Route: 037
  2. GABLOFEN [Suspect]
     Dosage: 200 MCG/DAY
     Route: 037
     Dates: start: 201307
  3. GABLOFEN [Suspect]
     Dosage: 1000MCG/DAY
     Route: 037
     Dates: end: 201307

REACTIONS (5)
  - Mental status changes [Unknown]
  - Drug withdrawal syndrome [Unknown]
  - Hallucination [Unknown]
  - Hypotonia [Unknown]
  - Hypotension [Unknown]
